FAERS Safety Report 26151753 (Version 1)
Quarter: 2025Q4

REPORT INFORMATION
  Report Type: Spontaneous
  Country: US (occurrence: US)
  Receive Date: 20251214
  Receipt Date: 20251214
  Transmission Date: 20260119
  Serious: Yes (Hospitalization, Other)
  Sender: VERITY PHARMACEUTICALS INC.
  Company Number: US-VER-202500327

PATIENT
  Age: 71 Year
  Sex: Male
  Weight: 85 kg

DRUGS (7)
  1. TRIPTORELIN PAMOATE [Suspect]
     Active Substance: TRIPTORELIN PAMOATE
     Indication: Androgen replacement therapy
     Dosage: START DATE: 19-SEP-2019
     Route: 030
  2. POLYETHYLENE GLYCOL 4000 [Concomitant]
     Active Substance: POLYETHYLENE GLYCOL 4000
     Indication: Constipation
     Route: 065
  3. PROLIA [Concomitant]
     Active Substance: DENOSUMAB
     Indication: Osteoporosis
     Route: 065
  4. CALCIUM CARBONATE\CHOLECALCIFEROL [Concomitant]
     Active Substance: CALCIUM CARBONATE\CHOLECALCIFEROL
     Indication: Osteoporosis prophylaxis
     Route: 065
     Dates: start: 20160901
  5. FOLVITE [Concomitant]
     Active Substance: FOLIC ACID
     Indication: Product used for unknown indication
     Route: 065
     Dates: start: 20200824
  6. ENZALUTAMIDE [Suspect]
     Active Substance: ENZALUTAMIDE
     Indication: Prostate cancer metastatic
     Route: 048
     Dates: start: 20191018, end: 20200918
  7. TALAZOPARIB [Suspect]
     Active Substance: TALAZOPARIB
     Indication: Prostate cancer metastatic
     Route: 065
     Dates: start: 20191018, end: 20200918

REACTIONS (1)
  - Acute coronary syndrome [Recovered/Resolved with Sequelae]

NARRATIVE: CASE EVENT DATE: 20200913
